FAERS Safety Report 5814127-0 (Version None)
Quarter: 2008Q3

REPORT INFORMATION
  Report Type: 
  Country: None (occurrence: None)
  Receive Date: 20080717
  Receipt Date: 20080702
  Transmission Date: 20090109
  Serious: Yes (Hospitalization)
  Sender: FDA-Public Use
  Company Number: PT-GENENTECH-219127

PATIENT
  Sex: Male
  Weight: 48.209 kg

DRUGS (6)
  1. BEVACIZUMAB [Suspect]
     Indication: COLON CANCER
     Dosage: 240 MG, Q2W
     Route: 042
     Dates: start: 20050316
  2. BEVACIZUMAB [Suspect]
     Dosage: 385 MG, Q2W
  3. OXALIPLATIN [Suspect]
     Indication: COLON CANCER
     Dosage: 125 MG, Q2W
     Route: 042
     Dates: start: 20050316
  4. LEUCOVORIN CALCIUM [Suspect]
     Indication: COLON CANCER
     Dosage: 295 MG, Q2W
     Route: 042
     Dates: start: 20050516
  5. FLUOROURACIL [Suspect]
     Indication: COLON CANCER
     Dosage: 590 MG, Q2W
     Route: 042
     Dates: start: 20050316
  6. NIMESULIDE [Concomitant]
     Indication: DRUG USE FOR UNKNOWN INDICATION
     Dosage: UNK, UNK
     Dates: start: 20050725, end: 20050831

REACTIONS (1)
  - ABDOMINAL WALL ABSCESS [None]
